FAERS Safety Report 6277633-3 (Version None)
Quarter: 2009Q3

REPORT INFORMATION
  Report Type: 
  Country: None (occurrence: None)
  Receive Date: 20090717
  Receipt Date: 20090717
  Transmission Date: 20100115
  Serious: Yes (Death)
  Sender: FDA-Public Use
  Company Number: None

PATIENT
  Age: 82 Year
  Sex: Male
  Weight: 77 kg

DRUGS (10)
  1. ZOLPIDEM [Suspect]
     Indication: SLEEP DISORDER
     Dosage: 10 MG QHS PO (ONE DOSE)
     Route: 048
     Dates: start: 20090707
  2. VARDENAFIL 10 MG [Suspect]
     Indication: ERECTILE DYSFUNCTION
     Dosage: 10 MG PRN PO (ONE DOSE)
     Route: 048
     Dates: start: 20090707
  3. DIGOXIN [Concomitant]
  4. NIACIN [Concomitant]
  5. NIFEDIPINE [Concomitant]
  6. ASPIRIN [Concomitant]
  7. SODIUM CHLORIDE [Concomitant]
  8. VITAMIN A [Concomitant]
  9. ASCORBIC ACID [Concomitant]
  10. ENOXAPARIN SODIUM [Concomitant]

REACTIONS (2)
  - FALL [None]
  - HAEMORRHAGE INTRACRANIAL [None]
